FAERS Safety Report 10803575 (Version 4)
Quarter: 2015Q4

REPORT INFORMATION
  Report Type: Spontaneous
  Country: US (occurrence: US)
  Receive Date: 20150217
  Receipt Date: 20151001
  Transmission Date: 20160304
  Serious: Yes (Other)
  Sender: FDA-Public Use
  Company Number: US-GLAXOSMITHKLINE-US2015GSK020924

PATIENT
  Age: 87 Year
  Sex: Male
  Weight: 56.8 kg

DRUGS (11)
  1. VOTRIENT [Suspect]
     Active Substance: PAZOPANIB HYDROCHLORIDE
     Dosage: 600 MG, QD
     Route: 065
     Dates: start: 20141017
  2. HYDROCODONE [Concomitant]
     Active Substance: HYDROCODONE
  3. METOPROLOL [Concomitant]
     Active Substance: METOPROLOL
  4. VOTRIENT [Suspect]
     Active Substance: PAZOPANIB HYDROCHLORIDE
     Dosage: 800 MG, QD
     Route: 048
     Dates: start: 20141008
  5. ATORVASTATIN [Concomitant]
     Active Substance: ATORVASTATIN
  6. TAMSULOSIN [Concomitant]
     Active Substance: TAMSULOSIN
  7. VOTRIENT [Suspect]
     Active Substance: PAZOPANIB HYDROCHLORIDE
     Dosage: 800 MG, QD
     Route: 048
     Dates: start: 20140917
  8. VOTRIENT [Suspect]
     Active Substance: PAZOPANIB HYDROCHLORIDE
     Dosage: 400 MG, QD
     Route: 065
     Dates: start: 20140917
  9. AVODART [Concomitant]
     Active Substance: DUTASTERIDE
  10. AMLODIPINE [Concomitant]
     Active Substance: AMLODIPINE BESYLATE
  11. VOTRIENT [Suspect]
     Active Substance: PAZOPANIB HYDROCHLORIDE
     Indication: RENAL CANCER
     Dosage: 200 MG, QD
     Dates: start: 20140829

REACTIONS (12)
  - Haemorrhoidal haemorrhage [Recovered/Resolved]
  - Anaemia [Unknown]
  - Weight decreased [Unknown]
  - Fatigue [Not Recovered/Not Resolved]
  - Vomiting [Unknown]
  - Muscle spasms [Unknown]
  - Diarrhoea [Unknown]
  - Rectal haemorrhage [Recovered/Resolved]
  - Hypertension [Recovered/Resolved]
  - Chronic kidney disease [Unknown]
  - Pruritus [Recovered/Resolved with Sequelae]
  - Nausea [Recovered/Resolved]

NARRATIVE: CASE EVENT DATE: 2014
